FAERS Safety Report 6164239-X (Version None)
Quarter: 2009Q2

REPORT INFORMATION
  Report Type: 
  Country: None (occurrence: None)
  Receive Date: 20090422
  Receipt Date: 20090420
  Transmission Date: 20091009
  Serious: No
  Sender: FDA-Public Use
  Company Number: US-B.I. PHARMACEUTICALS,INC./RIDGEFIELD-2009-BP-04093BP

PATIENT
  Sex: Male

DRUGS (15)
  1. SPIRIVA [Suspect]
     Indication: CHRONIC OBSTRUCTIVE PULMONARY DISEASE
     Dosage: 18MCG
     Route: 055
     Dates: start: 20090117
  2. DIGOXIN [Concomitant]
     Indication: CARDIAC DISORDER
     Dosage: .125MG
     Route: 048
     Dates: start: 19940101
  3. METOPROLOL SUCCINATE [Concomitant]
     Indication: HYPERTENSION
     Dosage: 100MG
     Route: 048
     Dates: start: 19800101
  4. COUMADIN [Concomitant]
     Indication: ANTICOAGULANT THERAPY
     Route: 048
     Dates: start: 19940101
  5. SIMVASTATIN [Concomitant]
     Indication: BLOOD CHOLESTEROL
     Dosage: 10MG
     Route: 048
     Dates: start: 20020101
  6. NITROGLYCERIN [Concomitant]
     Indication: PROPHYLAXIS
     Route: 060
     Dates: start: 19900101
  7. NORVASC [Concomitant]
  8. FLOMAX [Concomitant]
  9. FUROSEMIDE [Concomitant]
  10. KLOR-CON [Concomitant]
  11. WELLBUTRIN [Concomitant]
  12. ISOSORBIDE MONONITRATE [Concomitant]
  13. MULTI-VITAMIN [Concomitant]
  14. OXYCONTIN [Concomitant]
  15. TYLENOL W/ CODEINE [Concomitant]

REACTIONS (1)
  - DRY MOUTH [None]
